FAERS Safety Report 21873808 (Version 2)
Quarter: 2023Q1

REPORT INFORMATION
  Report Type: Spontaneous
  Country: US (occurrence: US)
  Receive Date: 20230117
  Receipt Date: 20230117
  Transmission Date: 20230418
  Serious: No
  Sender: FDA-Public Use
  Company Number: US-NOVOPROD-959460

PATIENT
  Sex: Female

DRUGS (2)
  1. RYBELSUS [Suspect]
     Active Substance: SEMAGLUTIDE
     Indication: Type 2 diabetes mellitus
     Dosage: TWO 3 MG TABLETS
     Route: 048
     Dates: start: 202205
  2. RYBELSUS [Suspect]
     Active Substance: SEMAGLUTIDE
     Indication: Type 2 diabetes mellitus
     Dosage: TWO 3 MG TABLETS
     Route: 048

REACTIONS (4)
  - Weight decreased [Unknown]
  - Gastroenteritis viral [Unknown]
  - Decreased appetite [Recovered/Resolved]
  - Off label use [Unknown]
